FAERS Safety Report 9820374 (Version 1)
Quarter: 2014Q1

REPORT INFORMATION
  Report Type: Spontaneous
  Country: IT (occurrence: IT)
  Receive Date: 20140116
  Receipt Date: 20140116
  Transmission Date: 20141002
  Serious: Yes (Hospitalization)
  Sender: FDA-Public Use
  Company Number: IT-BAYER-2014-004302

PATIENT
  Age: 94 Year
  Sex: 0

DRUGS (7)
  1. CARDIOASPIRIN [Suspect]
     Dosage: 100 MG, DAILY DOSE
     Route: 048
  2. COUMADIN [Suspect]
     Indication: ATRIAL FIBRILLATION
     Dosage: 8.75 MG, DAILY DOSE
     Route: 048
  3. LANOXIN [Concomitant]
  4. LASITONE [Concomitant]
  5. ZYLORIC [Concomitant]
     Dosage: UNK
  6. EUTIROX [Concomitant]
     Dosage: UNK
  7. FUROSEMIDE [Concomitant]
     Dosage: DAILY DOSE 25 MG

REACTIONS (1)
  - Cerebral haemorrhage [Recovered/Resolved with Sequelae]
